FAERS Safety Report 8966057 (Version 1)
Quarter: 2012Q4

REPORT INFORMATION
  Report Type: 
  Country: DE (occurrence: GB)
  Receive Date: 20121217
  Receipt Date: 20121217
  Transmission Date: 20130627
  Serious: Yes (Other)
  Sender: FDA-Public Use
  Company Number: GB-BRISTOL-MYERS SQUIBB COMPANY-17201815

PATIENT
  Sex: Female

DRUGS (1)
  1. ABILIFY [Suspect]

REACTIONS (1)
  - Cardiac disorder [Unknown]
